FAERS Safety Report 10063798 (Version 13)
Quarter: 2016Q4

REPORT INFORMATION
  Report Type: Report from Study
  Country: CA (occurrence: CA)
  Receive Date: 20140408
  Receipt Date: 20161223
  Transmission Date: 20170206
  Serious: Yes (Other)
  Sender: FDA-Public Use
  Company Number: CA-ROCHE-1372510

PATIENT
  Age: 57 Year
  Sex: Female

DRUGS (9)
  1. TYLENOL [Concomitant]
     Active Substance: ACETAMINOPHEN
     Indication: PREMEDICATION
     Route: 048
     Dates: start: 20140311
  2. SOLU-MEDROL [Concomitant]
     Active Substance: METHYLPREDNISOLONE SODIUM SUCCINATE
     Indication: PREMEDICATION
     Route: 042
     Dates: start: 20140311
  3. NAPROSYN [Concomitant]
     Active Substance: NAPROXEN
  4. RITUXAN [Suspect]
     Active Substance: RITUXIMAB
     Indication: RHEUMATOID ARTHRITIS
     Dosage: RECEIVED RITUXIMAB ON 07/DEC/2016
     Route: 042
     Dates: start: 20140311
  5. BENADRYL [Concomitant]
     Active Substance: DIPHENHYDRAMINE HYDROCHLORIDE
     Indication: PREMEDICATION
     Route: 048
     Dates: start: 20140311
  6. METHOTREXATE. [Concomitant]
     Active Substance: METHOTREXATE
  7. PREMARIN [Concomitant]
     Active Substance: ESTROGENS, CONJUGATED
  8. PLAQUENIL [Concomitant]
     Active Substance: HYDROXYCHLOROQUINE SULFATE
  9. FOLIC ACID. [Concomitant]
     Active Substance: FOLIC ACID

REACTIONS (15)
  - Urticaria [Recovered/Resolved]
  - Hypotension [Unknown]
  - Blood pressure fluctuation [Unknown]
  - Infusion related reaction [Unknown]
  - Burning sensation [Recovered/Resolved]
  - Abdominal hernia [Not Recovered/Not Resolved]
  - Rhinorrhoea [Recovering/Resolving]
  - Oxygen saturation decreased [Unknown]
  - Blood pressure increased [Unknown]
  - Tremor [Not Recovered/Not Resolved]
  - Nasopharyngitis [Recovering/Resolving]
  - Blood pressure systolic increased [Unknown]
  - Gastroenteritis [Recovered/Resolved]
  - Blood pressure diastolic abnormal [Unknown]
  - Paraesthesia [Recovered/Resolved]

NARRATIVE: CASE EVENT DATE: 20140313
